FAERS Safety Report 5730468-X (Version None)
Quarter: 2008Q2

REPORT INFORMATION
  Report Type: 
  Country: None (occurrence: None)
  Receive Date: 20080507
  Receipt Date: 20080428
  Transmission Date: 20081010
  Serious: Yes (Hospitalization)
  Sender: FDA-Public Use
  Company Number: FR-AVENTIS-200811622FR

PATIENT
  Age: 74 Year
  Sex: Male

DRUGS (11)
  1. LOVENOX [Suspect]
     Route: 042
     Dates: start: 20050101, end: 20080408
  2. ROCEPHIN [Suspect]
     Route: 042
     Dates: start: 20080408, end: 20080410
  3. TAMIFLU [Suspect]
     Route: 048
     Dates: start: 20080410, end: 20080410
  4. DAFALGAN                           /00020001/ [Suspect]
     Route: 048
     Dates: start: 20080409, end: 20080410
  5. ATHYMIL [Concomitant]
  6. EUCALCIC [Concomitant]
  7. HYDROCORTISONE [Concomitant]
  8. NEXIUM [Concomitant]
  9. KAYEXALATE [Concomitant]
  10. MINISINTROM [Concomitant]
  11. VFEND [Concomitant]
     Dates: start: 20080101

REACTIONS (1)
  - TOXIC EPIDERMAL NECROLYSIS [None]
